FAERS Safety Report 6985051-5 (Version None)
Quarter: 2010Q3

REPORT INFORMATION
  Report Type: 
  Country: None (occurrence: None)
  Receive Date: 20100915
  Receipt Date: 20100721
  Transmission Date: 20110219
  Serious: Yes (Other)
  Sender: FDA-Public Use
  Company Number: JP-SANOFI-AVENTIS-2010SA042367

PATIENT
  Age: 52 Year
  Sex: Male

DRUGS (11)
  1. HERBESSER ^TANABE^ [Suspect]
     Indication: HYPERTENSION
     Route: 048
     Dates: start: 20081009, end: 20081128
  2. LASIX [Suspect]
     Indication: CARDIOVASCULAR EVENT PROPHYLAXIS
     Route: 048
     Dates: start: 20081009, end: 20081128
  3. DEPAS [Suspect]
     Indication: ANXIOLYTIC THERAPY
     Route: 048
     Dates: start: 20081009, end: 20081128
  4. ASPIRIN [Suspect]
     Indication: ANTIPLATELET THERAPY
     Route: 048
     Dates: start: 20081009, end: 20081128
  5. ALDACTONE [Suspect]
     Indication: CARDIOVASCULAR EVENT PROPHYLAXIS
     Route: 048
     Dates: start: 20081009, end: 20081128
  6. MICARDIS [Suspect]
     Indication: HYPERTENSION
     Route: 048
     Dates: start: 20081009, end: 20081128
  7. LIPITOR [Suspect]
     Indication: LIPIDS DECREASED
     Route: 048
     Dates: start: 20081009, end: 20081128
  8. ITOROL [Suspect]
     Indication: CORONARY ARTERY DILATATION
     Route: 048
     Dates: start: 20081009, end: 20081128
  9. WARFARIN SODIUM [Suspect]
     Indication: ANTICOAGULANT THERAPY
     Route: 048
     Dates: start: 20081009, end: 20081128
  10. FAMOTIDINE [Concomitant]
     Indication: PRODUCT USED FOR UNKNOWN INDICATION
     Route: 048
     Dates: start: 20081009, end: 20081128
  11. MAGNESIUM OXIDE [Concomitant]
     Indication: PRODUCT USED FOR UNKNOWN INDICATION
     Route: 048
     Dates: start: 20081009, end: 20081128

REACTIONS (1)
  - HEPATITIS ACUTE [None]
